FAERS Safety Report 18331805 (Version 3)
Quarter: 2021Q2

REPORT INFORMATION
  Report Type: Spontaneous
  Country: IT (occurrence: IT)
  Receive Date: 20200930
  Receipt Date: 20210521
  Transmission Date: 20210717
  Serious: Yes (Death, Hospitalization, Other)
  Sender: FDA-Public Use
  Company Number: NVSC2020IT265306

PATIENT
  Age: 85 Year
  Sex: Male

DRUGS (24)
  1. DEXMEDETOMIDINE. [Concomitant]
     Active Substance: DEXMEDETOMIDINE
     Indication: SEDATION
     Dosage: UNK
     Route: 065
     Dates: start: 20200415
  2. HYDROXYCHLOROQUINE [Concomitant]
     Active Substance: HYDROXYCHLOROQUINE
     Indication: COVID-19
     Dosage: UNK
     Route: 065
     Dates: start: 20200323
  3. BASSADO [Concomitant]
     Active Substance: DOXYCYCLINE
     Indication: PRODUCT USED FOR UNKNOWN INDICATION
     Dosage: 100 MG, BID GNT
     Route: 065
     Dates: end: 20200510
  4. CONGESCOR [Concomitant]
     Active Substance: BISOPROLOL
     Indication: PRODUCT USED FOR UNKNOWN INDICATION
     Dosage: 1.25 MG
     Route: 065
     Dates: end: 20200520
  5. DACRIOGEL [Concomitant]
     Indication: PRODUCT USED FOR UNKNOWN INDICATION
     Dosage: UNK, (1 GTT) QID
     Route: 065
     Dates: end: 20200508
  6. PROPOFOL. [Concomitant]
     Active Substance: PROPOFOL
     Indication: PRODUCT USED FOR UNKNOWN INDICATION
     Dosage: 1 MG/KG, QH
     Route: 065
     Dates: end: 20200520
  7. AZITHROMYCIN ANHYDROUS. [Concomitant]
     Active Substance: AZITHROMYCIN ANHYDROUS
     Indication: COVID-19
     Dosage: UNK
     Route: 065
     Dates: start: 20200327
  8. CLEXANE [Concomitant]
     Active Substance: ENOXAPARIN SODIUM
     Indication: COVID-19
     Dosage: 6000 IU, BID
     Route: 058
     Dates: start: 20200327, end: 20200520
  9. ULTIVA [Concomitant]
     Active Substance: REMIFENTANIL HYDROCHLORIDE
     Indication: PRODUCT USED FOR UNKNOWN INDICATION
     Dosage: UNK (0.10 ?/KG/M)
     Route: 065
     Dates: end: 20200520
  10. ALITRAQ [Concomitant]
     Indication: PRODUCT USED FOR UNKNOWN INDICATION
     Dosage: 50 ML, QH
     Route: 065
     Dates: end: 20200507
  11. ABOUND [Concomitant]
     Indication: PRODUCT USED FOR UNKNOWN INDICATION
     Dosage: UNK (1 SACHET IN SF 120 ML GNT B.I.D.)
     Route: 065
     Dates: end: 20200510
  12. ILARIS [Suspect]
     Active Substance: CANAKINUMAB
     Indication: MULTIPLE ORGAN DYSFUNCTION SYNDROME
     Dosage: 300 MG, SINGLE ON DAY 25 AND 31
     Route: 058
     Dates: start: 20200417, end: 20200423
  13. LOPINAVIR + RITONAVIR [Concomitant]
     Active Substance: LOPINAVIR\RITONAVIR
     Indication: COVID-19
     Dosage: UNK
     Route: 065
     Dates: start: 20200327
  14. ESMERON [Concomitant]
     Active Substance: ROCURONIUM BROMIDE
     Indication: PRODUCT USED FOR UNKNOWN INDICATION
     Dosage: UNK (50 MG AT 2.5 ML/H)
     Route: 065
     Dates: end: 20200509
  15. TOCILIZUMAB. [Concomitant]
     Active Substance: TOCILIZUMAB
     Indication: COVID-19
     Dosage: 8 MG/KG, SINGLE
     Route: 042
     Dates: start: 20200328
  16. ANTRA I.V. [Concomitant]
     Indication: PRODUCT USED FOR UNKNOWN INDICATION
     Dosage: 40 MG
     Route: 065
     Dates: end: 20200520
  17. TOBRAL [Concomitant]
     Active Substance: TOBRAMYCIN
     Indication: PRODUCT USED FOR UNKNOWN INDICATION
     Dosage: UNK, (1 GTT) QID
     Route: 065
     Dates: end: 20200508
  18. ILARIS [Suspect]
     Active Substance: CANAKINUMAB
     Indication: CYTOKINE STORM
  19. NORADRENALIN [Concomitant]
     Active Substance: NOREPINEPHRINE\NOREPINEPHRINE BITARTRATE
     Indication: PRODUCT USED FOR UNKNOWN INDICATION
     Dosage: UNK (0.15 ?/KG/M)
     Route: 065
     Dates: end: 20200520
  20. NACL [Concomitant]
     Active Substance: SODIUM CHLORIDE
     Indication: PRODUCT USED FOR UNKNOWN INDICATION
     Dosage: 30 ML, QH
     Route: 065
     Dates: end: 20200520
  21. PLAVIX [Concomitant]
     Active Substance: CLOPIDOGREL BISULFATE
     Indication: PRODUCT USED FOR UNKNOWN INDICATION
     Dosage: 75 MG, GNT
     Route: 065
     Dates: end: 20200512
  22. LASIX [Concomitant]
     Active Substance: FUROSEMIDE
     Indication: PRODUCT USED FOR UNKNOWN INDICATION
     Dosage: UNK (125 MG IN SF 50ML AT 2.1 ML/H)
     Route: 065
     Dates: end: 20200520
  23. ILARIS [Suspect]
     Active Substance: CANAKINUMAB
     Indication: COVID-19
     Dosage: 300 MG
     Route: 058
     Dates: start: 20200417, end: 20200417
  24. SPIRIVA [Concomitant]
     Active Substance: TIOTROPIUM BROMIDE MONOHYDRATE
     Indication: PRODUCT USED FOR UNKNOWN INDICATION
     Dosage: UNK (2 PUFF)
     Route: 065
     Dates: end: 20200520

REACTIONS (3)
  - Superinfection [Fatal]
  - Respiratory tract infection bacterial [Fatal]
  - Product use in unapproved indication [Fatal]
